FAERS Safety Report 10283611 (Version 1)
Quarter: 2014Q3

REPORT INFORMATION
  Report Type: Spontaneous
  Country: US (occurrence: US)
  Receive Date: 20140708
  Receipt Date: 20140708
  Transmission Date: 20150326
  Serious: Yes (Hospitalization)
  Sender: FDA-Public Use
  Company Number: US-JNJFOC-20140617102

PATIENT
  Age: 31 Year
  Sex: Female

DRUGS (3)
  1. ZIPRASIDONE [Suspect]
     Active Substance: ZIPRASIDONE
     Indication: AGITATION
     Route: 065
  2. HALOPERIDOL. [Suspect]
     Active Substance: HALOPERIDOL
     Indication: AGITATION
     Route: 030
  3. HALOPERIDOL. [Suspect]
     Active Substance: HALOPERIDOL
     Indication: AGITATION
     Route: 042

REACTIONS (5)
  - Respiratory acidosis [Unknown]
  - Torsade de pointes [Recovered/Resolved]
  - Mental status changes [Unknown]
  - Off label use [Unknown]
  - Electrocardiogram QT prolonged [Recovered/Resolved]
